FAERS Safety Report 12336987 (Version 2)
Quarter: 2016Q2

REPORT INFORMATION
  Report Type: Report from Study
  Country: SK (occurrence: SK)
  Receive Date: 20160505
  Receipt Date: 20160509
  Transmission Date: 20160815
  Serious: Yes (Death, Hospitalization)
  Sender: FDA-Public Use
  Company Number: SK-JNJFOC-20160500667

PATIENT
  Age: 60 Year
  Sex: Male
  Weight: 105 kg

DRUGS (1)
  1. USTEKINUMAB [Suspect]
     Active Substance: USTEKINUMAB
     Indication: PSORIASIS
     Route: 058
     Dates: start: 201110

REACTIONS (1)
  - Craniocerebral injury [Fatal]

NARRATIVE: CASE EVENT DATE: 20160107
